FAERS Safety Report 25028889 (Version 1)
Quarter: 2025Q1

REPORT INFORMATION
  Report Type: Report from Study
  Country: US (occurrence: US)
  Receive Date: 20250302
  Receipt Date: 20250302
  Transmission Date: 20250409
  Serious: Yes (Other)
  Sender: ABBVIE
  Company Number: US-ABBVIE-6152463

PATIENT
  Age: 72 Year
  Sex: Female

DRUGS (1)
  1. RINVOQ [Suspect]
     Active Substance: UPADACITINIB
     Indication: Rheumatoid arthritis
     Route: 048
     Dates: start: 20230308

REACTIONS (5)
  - Paranasal sinus hyposecretion [Not Recovered/Not Resolved]
  - Epistaxis [Unknown]
  - Asthenia [Unknown]
  - Sinusitis [Not Recovered/Not Resolved]
  - Multiple allergies [Not Recovered/Not Resolved]

NARRATIVE: CASE EVENT DATE: 20240601
